FAERS Safety Report 4761462-3 (Version None)
Quarter: 2005Q3

REPORT INFORMATION
  Report Type: 
  Country: None (occurrence: None)
  Receive Date: 20050906
  Receipt Date: 20050829
  Transmission Date: 20060218
  Serious: Yes (Hospitalization)
  Sender: FDA-Public Use
  Company Number: PHRM2005FR02342

PATIENT
  Age: 92 Year
  Sex: Female

DRUGS (10)
  1. COTAREG [Suspect]
     Indication: ESSENTIAL HYPERTENSION
     Dosage: 1 DF, QD
     Route: 048
     Dates: end: 20050622
  2. DOLIPRANE [Suspect]
     Route: 065
  3. PLAVIX [Suspect]
     Route: 048
  4. TRIFLUCAN [Suspect]
     Indication: CANDIDIASIS
     Dosage: 50 MG, QD
     Route: 048
     Dates: start: 20050616, end: 20050622
  5. CITALOPRAM HYDROBROMIDE [Suspect]
     Dosage: 20 MG, BID
     Route: 048
     Dates: start: 20050616
  6. LANZOR [Suspect]
     Dosage: 30 MG, QD
     Route: 048
     Dates: start: 20050616, end: 20050622
  7. CORDARONE [Concomitant]
     Dosage: 200 MG, QW5
     Route: 048
     Dates: start: 20050609
  8. MOTILIUM [Concomitant]
     Indication: DYSPEPSIA
     Dosage: 10 MG, QD
     Route: 048
     Dates: start: 20050621, end: 20050621
  9. ADANCOR [Suspect]
     Route: 048
  10. TRAMADOL HCL [Suspect]
     Route: 065

REACTIONS (6)
  - ASTHENIA [None]
  - DRUG INTERACTION [None]
  - FALL [None]
  - GENERAL PHYSICAL HEALTH DETERIORATION [None]
  - HYPOCHLORAEMIA [None]
  - HYPONATRAEMIA [None]
